FAERS Safety Report 10276924 (Version 1)
Quarter: 2014Q3

REPORT INFORMATION
  Report Type: Report from Study
  Country: US (occurrence: US)
  Receive Date: 20140703
  Receipt Date: 20140703
  Transmission Date: 20150326
  Serious: Yes (Hospitalization)
  Sender: FDA-Public Use
  Company Number: US-EXELIXIS-CABO-14004453

PATIENT
  Age: 76 Year
  Sex: Male

DRUGS (1)
  1. CABOZANTINIB [Suspect]
     Active Substance: CABOZANTINIB
     Indication: THYROID CANCER
     Dosage: 140 MG, QD
     Route: 048
     Dates: start: 20140619, end: 20140624

REACTIONS (3)
  - Immune system disorder [Unknown]
  - Pain [Unknown]
  - Dehydration [Unknown]

NARRATIVE: CASE EVENT DATE: 201406
